FAERS Safety Report 18825214 (Version 2)
Quarter: 2021Q1

REPORT INFORMATION
  Report Type: Spontaneous
  Country: TH (occurrence: TH)
  Receive Date: 20210202
  Receipt Date: 20210203
  Transmission Date: 20210419
  Serious: Yes (Other)
  Sender: FDA-Public Use
  Company Number: TH-PFIZER INC-2020494854

PATIENT
  Age: 75 Year
  Sex: Female

DRUGS (2)
  1. SUTENT [Suspect]
     Active Substance: SUNITINIB MALATE
     Dosage: 37.5 MG/DAY, EVERYDAY
     Route: 048
     Dates: start: 20201203
  2. SUTENT [Suspect]
     Active Substance: SUNITINIB MALATE
     Indication: GASTROINTESTINAL STROMAL TUMOUR
     Dosage: 50 MG/DAY, EVERYDAY
     Route: 048
     Dates: start: 20201008

REACTIONS (4)
  - Platelet count decreased [Unknown]
  - Tongue ulceration [Unknown]
  - Skin haemorrhage [Unknown]
  - Mouth ulceration [Unknown]
